FAERS Safety Report 9783777 (Version 1)
Quarter: 2013Q4

REPORT INFORMATION
  Report Type: Spontaneous
  Country: US (occurrence: US)
  Receive Date: 20131226
  Receipt Date: 20131226
  Transmission Date: 20140711
  Serious: No
  Sender: FDA-Public Use
  Company Number: US-PFIZER INC-2013366446

PATIENT
  Sex: Female

DRUGS (3)
  1. ADVIL [Suspect]
     Indication: BACK INJURY
     Dosage: UNK
     Dates: start: 20131216
  2. AMOXICILLIN [Concomitant]
     Indication: BACTERIAL INFECTION
     Dosage: UNK
  3. AMOXICILLIN [Concomitant]
     Indication: VIRAL INFECTION

REACTIONS (5)
  - Drug ineffective [Unknown]
  - Malaise [Unknown]
  - Cough [Unknown]
  - Wheezing [Unknown]
  - Tremor [Unknown]
